FAERS Safety Report 8789499 (Version 1)
Quarter: 2012Q4

REPORT INFORMATION
  Report Type: Spontaneous
  Country: US (occurrence: None)
  Receive Date: 20120906
  Receipt Date: 20120906
  Transmission Date: 20130627
  Serious: Yes (Disabling)
  Sender: FDA-Public Use
  Company Number: DEP_00703_2012

PATIENT
  Age: 54 Year
  Sex: Female
  Weight: 92.53 kg

DRUGS (7)
  1. GRALISE [Suspect]
     Indication: SCIATICA
     Route: 048
     Dates: start: 20120822, end: 20120823
  2. GRALISE [Suspect]
     Indication: OFF LABEL USE
     Route: 048
     Dates: start: 20120822, end: 20120823
  3. PROZAC [Concomitant]
  4. JEVANTIQUE [Concomitant]
  5. DURAGESIC /00070401/ [Concomitant]
  6. MORPHINE [Concomitant]
  7. VISTARIL /00058402/ [Concomitant]

REACTIONS (7)
  - Off label use [None]
  - Pain [None]
  - Back pain [None]
  - Musculoskeletal pain [None]
  - Pain in extremity [None]
  - Pain in extremity [None]
  - Gait disturbance [None]
